FAERS Safety Report 5258342-6 (Version None)
Quarter: 2007Q1

REPORT INFORMATION
  Report Type: 
  Country: None (occurrence: None)
  Receive Date: 20070308
  Receipt Date: 20070228
  Transmission Date: 20070707
  Serious: Yes (Other)
  Sender: FDA-Public Use
  Company Number: BR-JNJFOC-20070301224

PATIENT
  Sex: Female
  Weight: 3.3 kg

DRUGS (2)
  1. TOPAMAX [Suspect]
     Route: 015
  2. TOPAMAX [Suspect]
     Indication: EPILEPSY
     Route: 015

REACTIONS (1)
  - JAUNDICE [None]
